FAERS Safety Report 4391453-6 (Version None)
Quarter: 2004Q3

REPORT INFORMATION
  Report Type: 
  Country: None (occurrence: None)
  Receive Date: 20040707
  Receipt Date: 20040624
  Transmission Date: 20050211
  Serious: Yes (Life-Threatening, Hospitalization, Other)
  Sender: FDA-Public Use
  Company Number: GB-GLAXOSMITHKLINE-B0336838A

PATIENT
  Age: 6 Year
  Sex: Female
  Weight: 24 kg

DRUGS (6)
  1. ONDANSETRON [Suspect]
     Indication: NAUSEA
     Route: 042
  2. TAZOCIN [Concomitant]
     Route: 065
  3. CHEMOTHERAPY [Concomitant]
  4. ANAESTHETICS [Concomitant]
  5. ANTIBIOTICS [Concomitant]
  6. COLLOIDS [Concomitant]

REACTIONS (2)
  - ACUTE RESPIRATORY DISTRESS SYNDROME [None]
  - SEPSIS [None]
